FAERS Safety Report 10224260 (Version 1)
Quarter: 2014Q1

REPORT INFORMATION
  Report Type: Spontaneous
  Country: US (occurrence: None)
  Receive Date: 20140306
  Receipt Date: 20140306
  Transmission Date: 20141002
  Serious: Yes (Hospitalization)
  Sender: FDA-Public Use
  Company Number: 163-21880-13093313

PATIENT
  Age: 70 Year
  Sex: Male

DRUGS (9)
  1. REVLIMID [Suspect]
     Indication: MYELOFIBROSIS
     Dosage: 10 MG, 21 IN 21 D, PO
     Route: 048
     Dates: start: 20130821
  2. VIAGRA (SILDENAFIL CITRATE) [Concomitant]
  3. EPIPEN (EPINEPHRINE) [Concomitant]
  4. SAW PALMETTO (SERENOA REPENS) [Concomitant]
  5. AMLODIPINE BESYLATE (AMLODIPINE BESILATE) [Concomitant]
  6. QUINAPRIL HCL (QUINAPRIL HYDROCHLORIDE) [Concomitant]
  7. PRILOSEC (OMEPRAZOLE) [Concomitant]
  8. COUMADIN (WARFARIN SODIUM) [Concomitant]
  9. JANTOVEN (WARFARIN SODIUM) [Concomitant]

REACTIONS (2)
  - Myelofibrosis [None]
  - Pneumonia [None]
